FAERS Safety Report 8152253-4 (Version None)
Quarter: 2012Q1

REPORT INFORMATION
  Report Type: 
  Country: None (occurrence: None)
  Receive Date: 20120214
  Receipt Date: 20100709
  Transmission Date: 20120608
  Serious: Yes (Hospitalization)
  Sender: FDA-Public Use
  Company Number: AU-000155

PATIENT
  Age: 63 Year
  Sex: Female

DRUGS (2)
  1. PERINDOPRIL ERBUMINE [Concomitant]
  2. ERYTHROMYCIN [Suspect]
     Dosage: 500 MG, ORAL
     Route: 048
     Dates: start: 20100307, end: 20100310

REACTIONS (2)
  - ANGIOEDEMA [None]
  - GRAND MAL CONVULSION [None]
